FAERS Safety Report 9735708 (Version 1)
Quarter: 2013Q4

REPORT INFORMATION
  Report Type: Report from Study
  Country: AU (occurrence: AU)
  Receive Date: 20131206
  Receipt Date: 20131206
  Transmission Date: 20140711
  Serious: Yes (Other)
  Sender: FDA-Public Use
  Company Number: PHHY2013AU142325

PATIENT
  Age: 75 Year
  Sex: Female

DRUGS (10)
  1. ACLASTA [Suspect]
     Dosage: 5 MG, UNK
     Route: 042
     Dates: start: 20101112
  2. ACLASTA [Suspect]
     Dosage: 5 UNK, UNK
     Route: 042
     Dates: start: 20111109
  3. ACLASTA [Suspect]
     Dosage: 5 MG, UNK
     Route: 042
     Dates: start: 20121029
  4. ATACAND PLUS [Concomitant]
     Dosage: 1 DF, QD
  5. CADUET [Concomitant]
     Dosage: 1 DF, QD
  6. CELEBREX [Concomitant]
     Dosage: 200 MG, PRN
  7. NASONEX [Concomitant]
     Dosage: 50 UG, UNK
  8. PANADOL OSTEO [Concomitant]
     Dosage: 665 MG, ONE TO TWO TIMES A DAY PRN
  9. PLAVIX [Concomitant]
     Dosage: 75 MG, QD
  10. SOMAC [Concomitant]
     Dosage: 40 MG, QD
     Route: 048

REACTIONS (1)
  - Osteoporotic fracture [Unknown]
